FAERS Safety Report 4310809-0 (Version None)
Quarter: 2004Q1

REPORT INFORMATION
  Report Type: 
  Country: None (occurrence: None)
  Receive Date: 20040301
  Receipt Date: 20031208
  Transmission Date: 20041129
  Serious: No
  Sender: FDA-Public Use
  Company Number: WAES 0312USA00906

PATIENT
  Age: 60 Year
  Sex: Male

DRUGS (1)
  1. ZETIA [Suspect]
     Dosage: 10MG/DAILY/PO
     Dates: end: 20031108

REACTIONS (5)
  - BRADYKINESIA [None]
  - DYSGRAPHIA [None]
  - GAIT DISTURBANCE [None]
  - HYPERTONIA [None]
  - SPEECH DISORDER [None]
